FAERS Safety Report 8587919 (Version 4)
Quarter: 2012Q4

REPORT INFORMATION
  Report Type: 
  Country: DE (occurrence: DE)
  Receive Date: 20120531
  Receipt Date: 20121030
  Transmission Date: 20130627
  Serious: Yes (Hospitalization, Other)
  Sender: FDA-Public Use
  Company Number: DE-JNJFOC-20120519883

PATIENT
  Age: 70 Year
  Sex: Male

DRUGS (10)
  1. LOSARTAN [Concomitant]
     Route: 065
  2. METOPROLOL [Concomitant]
     Route: 065
  3. AMIODARON [Concomitant]
     Route: 065
  4. CORDAREX [Concomitant]
     Route: 065
  5. NOVALGIN [Concomitant]
     Route: 065
  6. HEPARIN [Concomitant]
     Route: 065
  7. XARELTO [Suspect]
     Indication: CEREBROVASCULAR ACCIDENT PROPHYLAXIS
     Route: 048
  8. XARELTO [Suspect]
     Indication: ATRIAL FIBRILLATION
     Route: 048
  9. ATORVASTATIN [Concomitant]
     Route: 065
  10. ACETYLSALICYLIC ACID [Concomitant]
     Route: 065

REACTIONS (1)
  - Renal infarct [Recovered/Resolved]
